FAERS Safety Report 5186558-6 (Version None)
Quarter: 2006Q4

REPORT INFORMATION
  Report Type: 
  Country: None (occurrence: None)
  Receive Date: 20061213
  Receipt Date: 20061201
  Transmission Date: 20070319
  Serious: Yes (Other)
  Sender: FDA-Public Use
  Company Number: 2006JP004977

PATIENT
  Age: 80 Year
  Sex: Male

DRUGS (3)
  1. VESICARE [Suspect]
     Indication: HYPERTONIC BLADDER
     Dosage: 5 MG, UID/QD, ORAL
     Route: 048
     Dates: start: 20061125, end: 20061127
  2. LIPITOR [Concomitant]
  3. SUNRYTHM (PILSICANIDE HYDROCHLORIDE) [Concomitant]

REACTIONS (1)
  - ANGINA PECTORIS [None]
